FAERS Safety Report 5811625-0 (Version None)
Quarter: 2008Q3

REPORT INFORMATION
  Report Type: 
  Country: None (occurrence: None)
  Receive Date: 20080716
  Receipt Date: 20080109
  Transmission Date: 20090109
  Serious: Yes (Death, Life-Threatening, Hospitalization)
  Sender: FDA-Public Use
  Company Number: DE-ASTRAZENECA-2008PK00048

PATIENT
  Age: 34734 Day
  Sex: Female
  Weight: 60 kg

DRUGS (2)
  1. SEROQUEL [Suspect]
     Route: 048
  2. SPIROPENT [Suspect]

REACTIONS (1)
  - TOXIC EPIDERMAL NECROLYSIS [None]
